FAERS Safety Report 16315249 (Version 1)
Quarter: 2019Q2

REPORT INFORMATION
  Report Type: Spontaneous
  Country: ES (occurrence: ES)
  Receive Date: 20190515
  Receipt Date: 20190515
  Transmission Date: 20190711
  Serious: Yes (Hospitalization)
  Sender: FDA-Public Use
  Company Number: ES-TEVA-2019-ES-1048084

PATIENT
  Age: 59 Year
  Sex: Male

DRUGS (22)
  1. ALOPURINOL AUROBINDO 100 MG COMPRIMIDOS EFG, 100 COMPRIMIDOS [Concomitant]
     Dates: start: 20190111
  2. BUDESONIDA  ALDO UNION 200 MICROGRAMOS/PULSACI?N SUSPENSI?N PARA INHAL [Concomitant]
     Dates: start: 20190111
  3. SILODOSINA (8396A) [Concomitant]
     Route: 048
     Dates: start: 20190111
  4. OMEPRAZOL ABDRUG 20 MG CAPSULAS DURAS GASTRORRESISTENTES EFG , 14 C?PS [Concomitant]
     Active Substance: OMEPRAZOLE SODIUM
     Route: 048
     Dates: start: 20190111
  5. MIRTAZAPINA  FLAS STADA 30 MG COMPRIMIDOS BUCODISPERSABLES EFG, 30 COM [Concomitant]
     Route: 048
     Dates: start: 20190111
  6. NITROGLICERINA MYLAN 10 MG/ 24 H PARCHES TRANSDERMICOS EFG , 30 PARCHE [Concomitant]
     Route: 062
     Dates: start: 20190111
  7. MASTICAL 500 MG COMPRIMIDOS MASTICABLES, 16 ML [Concomitant]
     Route: 048
     Dates: start: 20190111
  8. PARACETAMOL ABAMED 1G COMPRIMIDOS EFG , 20 COMPRIMIDOS (BLISTER) [Concomitant]
     Dates: start: 20190111
  9. LORAZEPAM ARISTO 1 MG COMPRIMIDOS BUCODISPERSABLES EFG, 25 COMPRIMIDOS [Concomitant]
     Route: 048
     Dates: start: 20190111
  10. FORMOTEROL ALDO-UNI?N 12 MICROGRAMOS POLVO PARA INHALACI?N (C?PSULAS D [Concomitant]
     Dates: start: 20190111
  11. LANTUS 100 UNIDADES/ML INYECTABLE EN PLUMA PRECARGADA, 10 [Concomitant]
     Dates: start: 20180111
  12. EPOETINA ALFA (2498A) [Concomitant]
     Dates: start: 20190111
  13. BROMURO DE IPRATROPIO ALDO-UNION 250 MICROGRAMOS/ML SOLUCION PARA INHA [Concomitant]
     Dates: start: 20190111
  14. TAMSULOSINA  QUALIGEN 0,4 MG CAPSULAS DURAS DE LIBERACION PROLONGADA E [Concomitant]
     Route: 048
     Dates: start: 20190111
  15. ACIDO FOLICO ARDERIU 5MG 50 COMPRIMIDOS [Concomitant]
     Route: 048
     Dates: start: 20190111
  16. CIPROFLOXACINO (2049A) [Suspect]
     Active Substance: CIPROFLOXACIN
     Indication: ARTHRITIS BACTERIAL
     Route: 048
     Dates: start: 20190111, end: 20190311
  17. LEVOTIROXINA SANOFI 50 MICROGRAMOS COMPRIMIDOS , 100 COMPRIMIDOS [Concomitant]
     Dates: start: 20190111
  18. NOVORAPID 100 U/ML, SOLUCION INYECTABLE EN UN VIAL, 1 [Concomitant]
     Dates: start: 20180111
  19. METAMIZOL ALTER 575 MG CAPSULAS EFG , 500 C?PSULAS [Concomitant]
     Dates: start: 20190111
  20. PREGABALINA  STADA 25 MG CAPSULAS DURAS EFG, 100 C?PSULAS [Concomitant]
     Route: 048
     Dates: start: 20190111
  21. ACIDO ACETILSALICILICO ABEX 100 MG COMPRIMIDOS GASTRORRESISTENTES EFG [Concomitant]
     Route: 048
     Dates: start: 20190111
  22. PREDNISONA CINFA 30 MG COMPRIMIDOS EFG, 30 COMPRIMIDOS [Concomitant]
     Active Substance: PREDNISONE
     Dates: start: 20180111

REACTIONS (1)
  - Hepatitis cholestatic [Recovered/Resolved]

NARRATIVE: CASE EVENT DATE: 20190307
